FAERS Safety Report 26189450 (Version 1)
Quarter: 2025Q4

REPORT INFORMATION
  Report Type: Spontaneous
  Country: US (occurrence: US)
  Receive Date: 20251223
  Receipt Date: 20251223
  Transmission Date: 20260117
  Serious: Yes (Hospitalization)
  Sender: TEVA
  Company Number: US-TEVA-VS-3404570

PATIENT
  Age: 51 Year
  Sex: Male

DRUGS (5)
  1. TESTOSTERONE [Suspect]
     Active Substance: TESTOSTERONE
     Indication: Hypogonadism
     Dosage: RECEIVING FOR ABOUT 2 YEARS BEFORE CURRENT PRESENTATION
     Route: 065
  2. PREGNENOLONE [Suspect]
     Active Substance: PREGNENOLONE
     Indication: Hypogonadism
     Dosage: RECEIVING FOR ABOUT 2 YEARS BEFORE CURRENT PRESENTATION
     Route: 065
  3. DIPHENHYDRAMINE HYDROCHLORIDE [Suspect]
     Active Substance: DIPHENHYDRAMINE HYDROCHLORIDE
     Indication: Hypersensitivity
     Route: 030
  4. PRASTERONE [Suspect]
     Active Substance: PRASTERONE
     Indication: Hypogonadism
     Dosage: RECEIVING FOR ABOUT 2 YEARS BEFORE CURRENT PRESENTATION
     Route: 065
  5. CEFTRIAXONE [Suspect]
     Active Substance: CEFTRIAXONE
     Indication: Influenza like illness
     Route: 030

REACTIONS (3)
  - Embolism arterial [Recovering/Resolving]
  - Thrombosis [Recovering/Resolving]
  - Intentional product misuse [Unknown]
